FAERS Safety Report 4521261-4 (Version None)
Quarter: 2004Q4

REPORT INFORMATION
  Report Type: 
  Country: None (occurrence: None)
  Receive Date: 20041208
  Receipt Date: 20040922
  Transmission Date: 20050328
  Serious: Yes (Other)
  Sender: FDA-Public Use
  Company Number: US-GLAXOSMITHKLINE-A0526867A

PATIENT
  Age: 42 Year
  Sex: Male
  Weight: 63.6 kg

DRUGS (2)
  1. PAXIL CR [Suspect]
     Indication: DEPRESSION
     Dosage: 12.5MG PER DAY
     Route: 048
     Dates: start: 19951001, end: 20041015
  2. NO CONCURRENT MEDICATION [Concomitant]

REACTIONS (4)
  - AGGRESSION [None]
  - ANGER [None]
  - DISINHIBITION [None]
  - PSYCHIATRIC SYMPTOM [None]
